FAERS Safety Report 6336617-7 (Version None)
Quarter: 2009Q3

REPORT INFORMATION
  Report Type: 
  Country: None (occurrence: None)
  Receive Date: 20090831
  Receipt Date: 20090831
  Transmission Date: 20100115
  Serious: Yes (Disabling)
  Sender: FDA-Public Use
  Company Number: None

PATIENT
  Age: 58 Year
  Sex: Female
  Weight: 54.4316 kg

DRUGS (2)
  1. ACTONEL [Suspect]
     Indication: OSTEOPENIA
     Dates: start: 20000801, end: 20090829
  2. ACTONEL [Suspect]
     Indication: OSTEOPOROSIS
     Dates: start: 20000801, end: 20090829

REACTIONS (1)
  - GASTROOESOPHAGEAL REFLUX DISEASE [None]
